FAERS Safety Report 4961743-4 (Version None)
Quarter: 2006Q1

REPORT INFORMATION
  Report Type: 
  Country: None (occurrence: None)
  Receive Date: 20060329
  Receipt Date: 20060321
  Transmission Date: 20060701
  Serious: Yes (Life-Threatening, Hospitalization, Other)
  Sender: FDA-Public Use
  Company Number: NLWYE464413MAR06

PATIENT
  Age: 56 Year
  Sex: Male

DRUGS (6)
  1. EFFEXOR XR [Suspect]
     Indication: DEPRESSION
     Dosage: SEE IMAGE
     Route: 065
     Dates: end: 20051201
  2. EFFEXOR XR [Suspect]
     Indication: DEPRESSION
     Dosage: SEE IMAGE
     Route: 065
     Dates: start: 20051201, end: 20060101
  3. EFFEXOR XR [Suspect]
     Indication: DEPRESSION
     Dosage: SEE IMAGE
     Route: 065
     Dates: start: 20041101
  4. EFFEXOR XR [Suspect]
     Indication: DEPRESSION
     Dosage: SEE IMAGE
     Route: 065
     Dates: start: 20060101
  5. BUSPIRONE HCL [Suspect]
     Indication: DEPRESSION
     Dosage: SEE IMAGE
     Route: 065
     Dates: start: 20040601, end: 20050101
  6. BUSPIRONE HCL [Suspect]
     Indication: DEPRESSION
     Dosage: SEE IMAGE
     Route: 065
     Dates: start: 20050101

REACTIONS (4)
  - FOAMING AT MOUTH [None]
  - GRAND MAL CONVULSION [None]
  - HEART RATE DECREASED [None]
  - RESPIRATORY ARREST [None]
